FAERS Safety Report 8368931-8 (Version None)
Quarter: 2012Q2

REPORT INFORMATION
  Report Type: 
  Country: None (occurrence: None)
  Receive Date: 20120516
  Receipt Date: 20120516
  Transmission Date: 20120825
  Serious: Yes (Other)
  Sender: FDA-Public Use
  Company Number: None

PATIENT
  Sex: Male

DRUGS (1)
  1. ZELBORAF [Suspect]
     Indication: MALIGNANT MELANOMA
     Dosage: 720 MG BID PO
     Route: 048
     Dates: start: 20120315

REACTIONS (6)
  - HEART RATE INCREASED [None]
  - EYE IRRITATION [None]
  - SQUAMOUS CELL CARCINOMA OF SKIN [None]
  - OCULAR HYPERAEMIA [None]
  - FATIGUE [None]
  - NEUROPATHY PERIPHERAL [None]
